FAERS Safety Report 23967032 (Version 1)
Quarter: 2024Q2

REPORT INFORMATION
  Report Type: Report from Study
  Country: HU (occurrence: HU)
  Receive Date: 20240612
  Receipt Date: 20240612
  Transmission Date: 20240716
  Serious: Yes (Hospitalization)
  Sender: FDA-Public Use
  Company Number: HU-JNJFOC-20201126886

PATIENT
  Age: 28 Year
  Sex: Female

DRUGS (4)
  1. ADALIMUMAB [Suspect]
     Active Substance: ADALIMUMAB\ISOPROPYL ALCOHOL
     Indication: Crohn^s disease
     Route: 058
     Dates: start: 20171214, end: 20181214
  2. VEDOLIZUMAB [Suspect]
     Active Substance: VEDOLIZUMAB
     Indication: Crohn^s disease
     Route: 065
     Dates: start: 20200121
  3. REMICADE [Suspect]
     Active Substance: INFLIXIMAB
     Indication: Crohn^s disease
     Route: 042
     Dates: start: 20170215, end: 20171124
  4. METHYLPREDNISOLONE [Suspect]
     Active Substance: METHYLPREDNISOLONE
     Indication: Crohn^s disease
     Route: 065
     Dates: start: 20140315

REACTIONS (3)
  - Crohn^s disease [Recovered/Resolved]
  - Cervical dysplasia [Unknown]
  - Cervix disorder [Recovered/Resolved]

NARRATIVE: CASE EVENT DATE: 20171102
